FAERS Safety Report 4759441-5 (Version None)
Quarter: 2005Q3

REPORT INFORMATION
  Report Type: 
  Country: None (occurrence: None)
  Receive Date: 20050826
  Receipt Date: 20050714
  Transmission Date: 20060218
  Serious: No
  Sender: FDA-Public Use
  Company Number: 216098

PATIENT
  Age: 61 Year
  Sex: Female

DRUGS (1)
  1. RAPTIVA [Suspect]
     Indication: PSORIASIS
     Dosage: 75 MG
     Dates: start: 20050401

REACTIONS (2)
  - BACK PAIN [None]
  - RASH [None]
